FAERS Safety Report 19710162 (Version 1)
Quarter: 2021Q3

REPORT INFORMATION
  Report Type: Spontaneous
  Country: CN (occurrence: CN)
  Receive Date: 20210816
  Receipt Date: 20210816
  Transmission Date: 20211014
  Serious: Yes (Other)
  Sender: FDA-Public Use
  Company Number: CN-PFIZER INC-202101015351

PATIENT
  Age: 40 Year
  Sex: Female
  Weight: 53 kg

DRUGS (14)
  1. ESSENTIALE N [POLYENE PHOSPHATIDYLCHOLINE] [Concomitant]
     Indication: ACUTE MYELOID LEUKAEMIA
     Dosage: 228 MG, 3X/DAY
     Route: 048
     Dates: start: 20210710, end: 20210712
  2. ESSENTIALE N [POLYENE PHOSPHATIDYLCHOLINE] [Concomitant]
     Indication: CHEMOTHERAPY
  3. UBIDECARENONE. [Concomitant]
     Active Substance: UBIDECARENONE
     Indication: CHEMOTHERAPY
  4. UBIDECARENONE. [Concomitant]
     Active Substance: UBIDECARENONE
     Indication: ACUTE MYELOID LEUKAEMIA
     Dosage: 10 MG, 3X/DAY
     Route: 048
     Dates: start: 20210710, end: 20210713
  5. CYTARABINE. [Suspect]
     Active Substance: CYTARABINE
     Indication: CHEMOTHERAPY
  6. APREPITANT. [Concomitant]
     Active Substance: APREPITANT
     Indication: CHEMOTHERAPY
  7. CYTARABINE. [Suspect]
     Active Substance: CYTARABINE
     Indication: ACUTE MYELOID LEUKAEMIA
     Dosage: 2.5 G, 2X/DAY
     Route: 041
     Dates: start: 20210710, end: 20210712
  8. DEXAMETHASONE SODIUM PHOSPHATE. [Concomitant]
     Active Substance: DEXAMETHASONE SODIUM PHOSPHATE
     Indication: ACUTE MYELOID LEUKAEMIA
     Dosage: 2.5 MG, 2X/DAY
     Route: 042
     Dates: start: 20210710, end: 20210712
  9. DEXAMETHASONE SODIUM PHOSPHATE. [Concomitant]
     Active Substance: DEXAMETHASONE SODIUM PHOSPHATE
     Indication: CHEMOTHERAPY
  10. APREPITANT. [Concomitant]
     Active Substance: APREPITANT
     Indication: ACUTE MYELOID LEUKAEMIA
     Dosage: 1 DF, 1X/DAY
     Route: 048
     Dates: start: 20210710, end: 20210712
  11. TROPISETRON HYDROCHLORIDE [Concomitant]
     Active Substance: TROPISETRON HYDROCHLORIDE
     Indication: CHEMOTHERAPY
  12. TROPISETRON HYDROCHLORIDE [Concomitant]
     Active Substance: TROPISETRON HYDROCHLORIDE
     Indication: ACUTE MYELOID LEUKAEMIA
     Dosage: 5 MG, 2X/DAY
     Route: 042
     Dates: start: 20210710, end: 20210712
  13. SODIUM POTASSIUM MAGNESIUM CALCIUM AND GLUCOSE [Concomitant]
     Indication: ACUTE MYELOID LEUKAEMIA
     Dosage: 500 ML, 1X/DAY
     Route: 041
     Dates: start: 20210710, end: 20210712
  14. SODIUM POTASSIUM MAGNESIUM CALCIUM AND GLUCOSE [Concomitant]
     Indication: CHEMOTHERAPY

REACTIONS (3)
  - Rash [Recovering/Resolving]
  - Dermatitis allergic [Recovering/Resolving]
  - Pruritus [Recovering/Resolving]

NARRATIVE: CASE EVENT DATE: 202107
